FAERS Safety Report 14138460 (Version 1)
Quarter: 2017Q4

REPORT INFORMATION
  Report Type: Spontaneous
  Country: US (occurrence: US)
  Receive Date: 20171027
  Receipt Date: 20171027
  Transmission Date: 20180321
  Serious: No
  Sender: FDA-Public Use
  Company Number: US-ROCHE-1930822

PATIENT
  Age: 83 Year
  Sex: Female

DRUGS (4)
  1. WARFARIN [Interacting]
     Active Substance: WARFARIN
     Indication: PULMONARY EMBOLISM
     Dosage: DISCONTINUED ON DAY 4 OF ADMISSION AND RESTARTED ON DAY 6
     Route: 065
  2. OSELTAMIVIR [Suspect]
     Active Substance: OSELTAMIVIR
     Indication: INFLUENZA
     Route: 065
  3. FUROSEMIDE. [Concomitant]
     Active Substance: FUROSEMIDE
     Route: 042
  4. PIPERACILLIN/TAZOBACTAM [Concomitant]
     Active Substance: PIPERACILLIN SODIUM\TAZOBACTAM SODIUM
     Route: 065

REACTIONS (2)
  - Coagulopathy [Recovered/Resolved]
  - Drug interaction [Unknown]
